FAERS Safety Report 4351119-5 (Version None)
Quarter: 2004Q2

REPORT INFORMATION
  Report Type: 
  Country: None (occurrence: None)
  Receive Date: 20040428
  Receipt Date: 20030814
  Transmission Date: 20050107
  Serious: Yes (Other)
  Sender: FDA-Public Use
  Company Number: US-JNJFOC-20030803341

PATIENT
  Age: 46 Year
  Sex: Male
  Weight: 72.5755 kg

DRUGS (3)
  1. ULTRAM [Suspect]
     Indication: INTERVERTEBRAL DISC DEGENERATION
     Dosage: 800 MG DAILY
     Dates: start: 20020101
  2. TEGRETOL [Concomitant]
  3. DEPAKOTE [Concomitant]

REACTIONS (3)
  - CONVULSION [None]
  - DRUG DEPENDENCE [None]
  - DRUG WITHDRAWAL SYNDROME [None]
